FAERS Safety Report 16665556 (Version 2)
Quarter: 2019Q3

REPORT INFORMATION
  Report Type: Spontaneous
  Country: US (occurrence: US)
  Receive Date: 20190803
  Receipt Date: 20190830
  Transmission Date: 20191004
  Serious: No
  Sender: FDA-Public Use
  Company Number: US-SHIRE-US201924839

PATIENT
  Age: 55 Year
  Sex: Female
  Weight: 54.42 kg

DRUGS (6)
  1. HYQVIA [Suspect]
     Active Substance: HUMAN IMMUNOGLOBULIN G\HYALURONIDASE RECOMBINANT HUMAN
     Dosage: 20 GRAM, 1X/DAY:QD
     Route: 065
     Dates: start: 20190811, end: 20190811
  2. ASA [Concomitant]
     Active Substance: ASPIRIN
     Indication: THROMBOSIS
     Dosage: UNK, 1X/DAY:QD
     Route: 048
     Dates: start: 20190730, end: 20190813
  3. HYQVIA [Suspect]
     Active Substance: HUMAN IMMUNOGLOBULIN G\HYALURONIDASE RECOMBINANT HUMAN
     Indication: PRODUCT USED FOR UNKNOWN INDICATION
     Dosage: 30 GRAM, 1X/DAY:QD
     Route: 065
     Dates: start: 20190611, end: 20190611
  4. HYQVIA [Suspect]
     Active Substance: HUMAN IMMUNOGLOBULIN G\HYALURONIDASE RECOMBINANT HUMAN
     Dosage: 20 GRAM, 1X/DAY:QD
     Route: 065
     Dates: start: 20190708, end: 20190708
  5. HYQVIA [Suspect]
     Active Substance: HUMAN IMMUNOGLOBULIN G\HYALURONIDASE RECOMBINANT HUMAN
     Dosage: 10 GRAM, 1X/DAY:QD
     Route: 065
     Dates: start: 20190611, end: 20190611
  6. HYQVIA [Suspect]
     Active Substance: HUMAN IMMUNOGLOBULIN G\HYALURONIDASE RECOMBINANT HUMAN
     Dosage: 20 GRAM, 1X/DAY:QD
     Route: 065
     Dates: start: 20190811, end: 20190811

REACTIONS (1)
  - Contusion [Not Recovered/Not Resolved]

NARRATIVE: CASE EVENT DATE: 20190811
